FAERS Safety Report 12176648 (Version 2)
Quarter: 2017Q1

REPORT INFORMATION
  Report Type: Spontaneous
  Country: US (occurrence: US)
  Receive Date: 20160314
  Receipt Date: 20170308
  Transmission Date: 20170428
  Serious: No
  Sender: FDA-Public Use
  Company Number: US-AKORN PHARMACEUTICALS-2016AKN00021

PATIENT
  Age: 25 Year
  Sex: Female

DRUGS (2)
  1. MYORISAN [Suspect]
     Active Substance: ISOTRETINOIN
     Indication: ACNE
     Dosage: 40 MG ALTERNATING WITH 80 MG QOD
     Route: 048
     Dates: start: 20151008, end: 20151109
  2. MYORISAN [Suspect]
     Active Substance: ISOTRETINOIN
     Dosage: 40 MG, 2X/DAY
     Route: 048
     Dates: start: 20151110, end: 20151230

REACTIONS (9)
  - Vision blurred [Unknown]
  - Musculoskeletal stiffness [Unknown]
  - Abdominal distension [Unknown]
  - Abdominal pain upper [Unknown]
  - Breast tenderness [Unknown]
  - Dry skin [Unknown]
  - Back pain [Unknown]
  - Lip dry [Unknown]
  - Headache [Unknown]

NARRATIVE: CASE EVENT DATE: 20151110
